FAERS Safety Report 8145023-4 (Version None)
Quarter: 2012Q1

REPORT INFORMATION
  Report Type: 
  Country: None (occurrence: None)
  Receive Date: 20120217
  Receipt Date: 20120203
  Transmission Date: 20120608
  Serious: Yes (Hospitalization)
  Sender: FDA-Public Use
  Company Number: PHEH2012US003335

PATIENT
  Sex: Female

DRUGS (25)
  1. FOLIC ACID [Concomitant]
     Dosage: 1 MG, DAILY
  2. INSULIN [Concomitant]
     Indication: BLOOD GLUCOSE INCREASED
  3. PERCOCET [Concomitant]
     Dosage: 10/325 MG 2 Q4H PRN
  4. BLOOD CELLS, PACKED HUMAN [Concomitant]
     Dosage: 2 U,
  5. AZITHROMYCIN [Concomitant]
  6. LANTUS [Concomitant]
     Dosage: 10 U, QHS
  7. EXJADE [Suspect]
     Indication: SICKLE CELL ANAEMIA
  8. OXYCODONE HCL AND ACETAMINOPHEN [Concomitant]
  9. ZYVOX [Concomitant]
  10. STEROIDS NOS [Concomitant]
  11. PREDNISONE [Concomitant]
     Dosage: 20 MG, BID
  12. EXJADE [Suspect]
     Indication: IRON OVERLOAD
     Dosage: 1250 MG, DAILY
     Route: 048
     Dates: start: 20110501
  13. DILAUDID [Concomitant]
     Dosage: 4 MG, EVERY 4 HOUR
     Route: 042
  14. BLOOD CELLS, PACKED HUMAN [Concomitant]
     Dosage: 6 U
  15. OXYCONTIN [Concomitant]
  16. ANTIEMETICS [Concomitant]
  17. VANCOMYCIN [Concomitant]
  18. HEPARIN [Concomitant]
     Indication: PROPHYLAXIS
  19. PANTOPRAZOLE [Concomitant]
     Dosage: 40 MG, DAILY
  20. TORADOL [Concomitant]
  21. LEVAQUIN [Concomitant]
  22. MOXIFLOXACIN [Concomitant]
  23. ROCEPHIN [Concomitant]
  24. HYDROXYUREA [Concomitant]
     Dosage: 500 MG, TID
  25. PHENERGAN [Concomitant]
     Indication: NAUSEA
     Dosage: 25 MG, Q6H

REACTIONS (21)
  - ANAEMIA HAEMOLYTIC AUTOIMMUNE [None]
  - SICKLE CELL ANAEMIA WITH CRISIS [None]
  - URINARY RETENTION [None]
  - CREPITATIONS [None]
  - BLOOD BILIRUBIN UNCONJUGATED INCREASED [None]
  - DECREASED APPETITE [None]
  - NAUSEA [None]
  - BACTERAEMIA [None]
  - CARDIAC MURMUR [None]
  - BACK PAIN [None]
  - RETICULOCYTE COUNT INCREASED [None]
  - BLOOD LACTATE DEHYDROGENASE INCREASED [None]
  - PNEUMONIA [None]
  - PRURITUS [None]
  - CHEST PAIN [None]
  - BLOOD GLUCOSE INCREASED [None]
  - PYREXIA [None]
  - PAIN IN EXTREMITY [None]
  - ATELECTASIS [None]
  - PAIN [None]
  - VOMITING [None]
